FAERS Safety Report 6024191-4 (Version None)
Quarter: 2008Q4

REPORT INFORMATION
  Report Type: 
  Country: None (occurrence: None)
  Receive Date: 20081224
  Receipt Date: 20081217
  Transmission Date: 20090506
  Serious: Yes (Death, Hospitalization)
  Sender: FDA-Public Use
  Company Number: US025186

PATIENT
  Age: 62 Year
  Sex: Female
  Weight: 79.6 kg

DRUGS (9)
  1. BENDAMUSTINE [Suspect]
     Indication: B-CELL LYMPHOMA
     Dosage: 90 MG/M2 DAYS 1 + 4 INTRAVENOUS
     Route: 042
     Dates: start: 20081013, end: 20081016
  2. BORTEZOMIB [Suspect]
     Indication: B-CELL LYMPHOMA
     Dosage: 1.3 MG/M2 DAYS 1, 4, 8, 11 INTRAVENOUS
     Route: 042
     Dates: start: 20081013, end: 20081020
  3. RITUXAN [Concomitant]
  4. ZAROXOLYN [Concomitant]
  5. POTASSIUM CHLORIDE [Concomitant]
  6. MYLANTA [Concomitant]
  7. FLONASE [Concomitant]
  8. METOCLOPRAMIDE [Concomitant]
  9. LORTAB [Concomitant]

REACTIONS (29)
  - ALOPECIA [None]
  - ANAEMIA [None]
  - AORTIC ARTERIOSCLEROSIS [None]
  - ARTERIOSCLEROSIS CORONARY ARTERY [None]
  - ASCITES [None]
  - BACTERIAL SEPSIS [None]
  - BLOOD ALKALINE PHOSPHATASE INCREASED [None]
  - BLOOD BILIRUBIN INCREASED [None]
  - BLOOD GLUCOSE INCREASED [None]
  - BLOOD SODIUM DECREASED [None]
  - CARDIOMEGALY [None]
  - DIARRHOEA [None]
  - DRUG TOXICITY [None]
  - DYSPNOEA EXERTIONAL [None]
  - FATIGUE [None]
  - GENERALISED OEDEMA [None]
  - HEADACHE [None]
  - HEPATOMEGALY [None]
  - HYPOTENSION [None]
  - JAUNDICE [None]
  - NEPHROSCLEROSIS [None]
  - OBESITY [None]
  - PANCYTOPENIA [None]
  - PLEURAL EFFUSION [None]
  - PYREXIA [None]
  - RENAL ATROPHY [None]
  - RENAL FAILURE ACUTE [None]
  - SPLENITIS [None]
  - THROMBOCYTOPENIA [None]
